FAERS Safety Report 9755985 (Version 2)
Quarter: 2013Q4

REPORT INFORMATION
  Report Type: Spontaneous
  Country: BR (occurrence: BR)
  Receive Date: 20131213
  Receipt Date: 20131213
  Transmission Date: 20140711
  Serious: Yes (Other)
  Sender: FDA-Public Use
  Company Number: BR-ASTRAZENECA-2012SE73804

PATIENT
  Age: 49 Year
  Sex: Female
  Weight: 48 kg

DRUGS (1)
  1. SELOZOK [Suspect]
     Indication: HYPERTENSION
     Route: 048
     Dates: start: 2010

REACTIONS (3)
  - Drug ineffective [Not Recovered/Not Resolved]
  - Hypertension [Not Recovered/Not Resolved]
  - Malaise [Recovered/Resolved]
